FAERS Safety Report 21901754 (Version 1)
Quarter: 2023Q1

REPORT INFORMATION
  Report Type: Spontaneous
  Country: US (occurrence: US)
  Receive Date: 20230124
  Receipt Date: 20230124
  Transmission Date: 20230418
  Serious: Yes (Hospitalization, Other)
  Sender: FDA-Public Use
  Company Number: US-SANOFI-01454246

PATIENT
  Age: 54 Year
  Sex: Female

DRUGS (1)
  1. DUPIXENT [Suspect]
     Active Substance: DUPILUMAB
     Indication: Asthma
     Dosage: 300 MG, QOW
     Route: 058
     Dates: start: 202004

REACTIONS (7)
  - Malaise [Unknown]
  - Impaired gastric emptying [Unknown]
  - Vomiting [Unknown]
  - Urinary tract infection [Unknown]
  - Fungal infection [Unknown]
  - Weight decreased [Unknown]
  - Insomnia [Unknown]
